FAERS Safety Report 6398767-9 (Version None)
Quarter: 2009Q4

REPORT INFORMATION
  Report Type: 
  Country: None (occurrence: None)
  Receive Date: 20091013
  Receipt Date: 20091002
  Transmission Date: 20100525
  Serious: Yes (Other)
  Sender: FDA-Public Use
  Company Number: CHPA2009US19717

PATIENT
  Sex: Female

DRUGS (1)
  1. THERAFLU NIGHTTIME SEVERE COLD WARMING SYRUP (NCH) [Suspect]
     Route: 048
     Dates: start: 20091002, end: 20091002

REACTIONS (1)
  - DIABETES MELLITUS [None]
